FAERS Safety Report 5331707-X (Version None)
Quarter: 2007Q2

REPORT INFORMATION
  Report Type: 
  Country: None (occurrence: None)
  Receive Date: 20070516
  Receipt Date: 20070503
  Transmission Date: 20071010
  Serious: Yes (Hospitalization)
  Sender: FDA-Public Use
  Company Number: POMP-10977

PATIENT
  Age: 290 Day
  Sex: Female
  Weight: 6.12 kg

DRUGS (3)
  1. MYOZYME [Suspect]
     Indication: GLYCOGEN STORAGE DISEASE TYPE II
     Dosage: 20 MG/KG Q2WKS IV
     Route: 042
     Dates: start: 20061027
  2. LASIX [Concomitant]
  3. DIGOXIN [Concomitant]

REACTIONS (3)
  - CATHETER RELATED COMPLICATION [None]
  - RESPIRATORY SYNCYTIAL VIRUS INFECTION [None]
  - WEIGHT GAIN POOR [None]
